FAERS Safety Report 9509501 (Version 1)
Quarter: 2013Q3

REPORT INFORMATION
  Report Type: Spontaneous
  Country: US (occurrence: US)
  Receive Date: 20130909
  Receipt Date: 20130909
  Transmission Date: 20140515
  Serious: No
  Sender: FDA-Public Use
  Company Number: US-BRISTOL-MYERS SQUIBB COMPANY-18935528

PATIENT
  Age: 15 Year
  Sex: Male

DRUGS (1)
  1. ABILIFY [Suspect]

REACTIONS (5)
  - Agitation [Unknown]
  - Feeling abnormal [Unknown]
  - Convulsions local [Unknown]
  - Hot flush [Unknown]
  - Feeling jittery [Unknown]
